FAERS Safety Report 15392346 (Version 3)
Quarter: 2018Q4

REPORT INFORMATION
  Report Type: Spontaneous
  Country: JP (occurrence: JP)
  Receive Date: 20180917
  Receipt Date: 20181008
  Transmission Date: 20190204
  Serious: Yes (Hospitalization, Other)
  Sender: FDA-Public Use
  Company Number: JP-PFIZER INC-2018366292

PATIENT
  Age: 57 Year
  Sex: Female
  Weight: 59.8 kg

DRUGS (13)
  1. IDAMYCIN [Suspect]
     Active Substance: IDARUBICIN HYDROCHLORIDE
     Indication: ACUTE MYELOID LEUKAEMIA
     Dosage: 20 MG, 1X/DAY
     Route: 042
     Dates: start: 20180626, end: 20180628
  2. ACELIO [Concomitant]
     Active Substance: ACETAMINOPHEN
     Dosage: UNK
     Dates: start: 20180707, end: 20180708
  3. FEBURIC [Concomitant]
     Active Substance: FEBUXOSTAT
     Dosage: UNK
     Dates: start: 20180627, end: 20180630
  4. OMEPRAZOLE. [Concomitant]
     Active Substance: OMEPRAZOLE
     Dosage: UNK
     Dates: start: 20180702
  5. FLUCONAZOLE. [Concomitant]
     Active Substance: FLUCONAZOLE
     Dosage: UNK
     Dates: start: 20180627, end: 20180702
  6. ACELIO [Concomitant]
     Active Substance: ACETAMINOPHEN
     Dosage: UNK
     Dates: start: 20180630, end: 20180702
  7. LEVOFLOXACIN. [Concomitant]
     Active Substance: LEVOFLOXACIN
     Dosage: UNK
     Dates: start: 20180627, end: 20180628
  8. MEROPENEM MEIJI [Suspect]
     Active Substance: MEROPENEM
     Indication: PYREXIA
     Dosage: 1 G, 3X/DAY
     Route: 042
     Dates: start: 20180702, end: 20180709
  9. CYLOCIDE [Suspect]
     Active Substance: CYTARABINE
     Indication: ACUTE MYELOID LEUKAEMIA
     Dosage: 85 MG, 2X/DAY
     Route: 042
     Dates: start: 20180626, end: 20180630
  10. EMEND [Concomitant]
     Active Substance: APREPITANT
     Dosage: UNK
     Dates: start: 20180626, end: 20180630
  11. SLOW K [Concomitant]
     Active Substance: POTASSIUM CHLORIDE
     Dosage: UNK
     Dates: start: 20180630, end: 20180701
  12. FUNGUARD [Concomitant]
     Active Substance: MICAFUNGIN SODIUM
     Dosage: UNK
     Dates: start: 20180702
  13. LANSOPRAZOLE. [Concomitant]
     Active Substance: LANSOPRAZOLE
     Dosage: UNK
     Dates: start: 20180625, end: 20180701

REACTIONS (6)
  - Disseminated intravascular coagulation [Unknown]
  - Pyrexia [Unknown]
  - C-reactive protein increased [Unknown]
  - Hepatic function abnormal [Recovered/Resolved]
  - Alanine aminotransferase increased [Recovered/Resolved]
  - Dysphagia [Unknown]

NARRATIVE: CASE EVENT DATE: 20180629
